FAERS Safety Report 9416301 (Version 1)
Quarter: 2013Q3

REPORT INFORMATION
  Report Type: Spontaneous
  Country: FR (occurrence: None)
  Receive Date: 20130719
  Receipt Date: 20130719
  Transmission Date: 20140515
  Serious: Yes (Other)
  Sender: FDA-Public Use
  Company Number: 1794524

PATIENT
  Age: 51 Year
  Sex: Male

DRUGS (11)
  1. CARBOPLATIN [Suspect]
     Indication: PRODUCT USED FOR UNKNOWN INDICATION
     Route: 042
     Dates: start: 20130531
  2. ETOPOSIDE [Suspect]
     Indication: PRODUCT USED FOR UNKNOWN INDICATION
     Route: 041
     Dates: start: 20130531, end: 20130601
  3. LARGACTIL [Concomitant]
  4. SOLUMEDROL [Concomitant]
  5. TRANXENE [Concomitant]
  6. GRANISETRON [Concomitant]
  7. PARACETAMOL [Concomitant]
  8. ZOLPIDEM [Concomitant]
  9. FASTURTEC [Concomitant]
  10. ALDACTONE [Concomitant]
  11. CALCIPARINE [Concomitant]

REACTIONS (1)
  - Pancytopenia [None]
